FAERS Safety Report 20559991 (Version 1)
Quarter: 2022Q1

REPORT INFORMATION
  Report Type: Spontaneous
  Country: US (occurrence: None)
  Receive Date: 20220304
  Receipt Date: 20220304
  Transmission Date: 20220423
  Serious: Yes (Hospitalization)
  Sender: FDA-Public Use
  Company Number: None

PATIENT
  Sex: Male
  Weight: 67.25 kg

DRUGS (22)
  1. ABIRATERONE [Suspect]
     Active Substance: ABIRATERONE
     Indication: Prostate cancer
     Dosage: FREQUENCY : DAILY;?
     Route: 048
  2. PREDNISONE [Concomitant]
     Active Substance: PREDNISONE
  3. JANUVIA [Concomitant]
     Active Substance: SITAGLIPTIN PHOSPHATE
  4. IPRATROPIUM [Concomitant]
     Active Substance: IPRATROPIUM
  5. VASCEPA [Concomitant]
     Active Substance: ICOSAPENT ETHYL
  6. GLIPIZIDE [Concomitant]
     Active Substance: GLIPIZIDE
  7. ALLEGRA [Concomitant]
     Active Substance: FEXOFENADINE HYDROCHLORIDE
  8. FLUTICASONE [Concomitant]
     Active Substance: FLUTICASONE
  9. SINGULAIR [Concomitant]
     Active Substance: MONTELUKAST SODIUM
  10. ISOSORBIDE [Concomitant]
     Active Substance: ISOSORBIDE
  11. OLAPATADINE [Concomitant]
  12. ENTRESTO [Concomitant]
     Active Substance: SACUBITRIL\VALSARTAN
  13. XTANDI [Concomitant]
     Active Substance: ENZALUTAMIDE
  14. FISH OIL [Concomitant]
     Active Substance: FISH OIL
  15. XARELTO [Concomitant]
     Active Substance: RIVAROXABAN
  16. TAMSULOSIN [Concomitant]
     Active Substance: TAMSULOSIN
  17. NITROSTAT [Concomitant]
     Active Substance: NITROGLYCERIN
  18. LASIX [Concomitant]
     Active Substance: FUROSEMIDE
  19. LANOXIN [Concomitant]
     Active Substance: DIGOXIN
  20. TRESIBA [Concomitant]
     Active Substance: INSULIN DEGLUDEC
  21. COREG [Concomitant]
     Active Substance: CARVEDILOL
  22. LIPITOR [Concomitant]
     Active Substance: ATORVASTATIN CALCIUM

REACTIONS (1)
  - Hospitalisation [None]
